FAERS Safety Report 21223770 (Version 4)
Quarter: 2022Q4

REPORT INFORMATION
  Report Type: Report from Study
  Country: US (occurrence: None)
  Receive Date: 20220817
  Receipt Date: 20221103
  Transmission Date: 20230112
  Serious: Yes (Hospitalization)
  Sender: FDA-Public Use
  Company Number: US-Eisai Medical Research-EC-2022-118960

PATIENT
  Age: 81 Year
  Sex: Male

DRUGS (5)
  1. LENVIMA [Suspect]
     Active Substance: LENVATINIB
     Indication: Renal cancer
     Route: 048
     Dates: start: 20220706, end: 20220724
  2. LENVIMA [Suspect]
     Active Substance: LENVATINIB
     Route: 048
     Dates: start: 2022, end: 20220816
  3. LENVIMA [Suspect]
     Active Substance: LENVATINIB
     Route: 048
     Dates: start: 20220827, end: 20220923
  4. KEYTRUDA [Concomitant]
     Active Substance: PEMBROLIZUMAB
     Indication: Renal cancer
     Dosage: DOSE NOT PROVIDED
     Route: 042
     Dates: start: 202207, end: 20220816
  5. KEYTRUDA [Concomitant]
     Active Substance: PEMBROLIZUMAB
     Dosage: DOSE NOT PROVIDED
     Route: 042
     Dates: start: 20220827

REACTIONS (12)
  - Fungal infection [Unknown]
  - Urinary tract infection [Unknown]
  - Electrocardiogram QT prolonged [Unknown]
  - Renal failure [Unknown]
  - Confusional state [Unknown]
  - Abdominal discomfort [Unknown]
  - SARS-CoV-2 test positive [Unknown]
  - Hypothyroidism [Unknown]
  - Gene mutation [Unknown]
  - Delirium [Unknown]
  - Nausea [Unknown]
  - Asthenia [Unknown]

NARRATIVE: CASE EVENT DATE: 20220701
